FAERS Safety Report 22171637 (Version 5)
Quarter: 2023Q2

REPORT INFORMATION
  Report Type: Report from Study
  Country: GB (occurrence: GB)
  Receive Date: 20230404
  Receipt Date: 20230605
  Transmission Date: 20230722
  Serious: Yes (Hospitalization)
  Sender: FDA-Public Use
  Company Number: GB-ROCHE-3291330

PATIENT
  Age: 25 Year
  Sex: Female

DRUGS (16)
  1. DOCETAXEL [Suspect]
     Active Substance: DOCETAXEL
     Indication: Breast cancer
     Dosage: 132 MG, EVERY 3 WEEKS
     Route: 042
     Dates: start: 20180214, end: 20180529
  2. PERTUZUMAB [Suspect]
     Active Substance: PERTUZUMAB
     Indication: Breast cancer
     Dosage: 840 MG, EVERY 3 WEEKS
     Route: 042
     Dates: start: 20180213, end: 20180213
  3. PERTUZUMAB [Suspect]
     Active Substance: PERTUZUMAB
     Dosage: 420 MG, EVERY 3 WEEKS
     Route: 042
     Dates: start: 20180306
  4. TRASTUZUMAB [Suspect]
     Active Substance: TRASTUZUMAB
     Indication: Breast cancer
     Dosage: 680 MG, EVERY 3 WEEKS
     Route: 042
     Dates: start: 20180213, end: 20180213
  5. TRASTUZUMAB [Suspect]
     Active Substance: TRASTUZUMAB
     Dosage: 510 MG, EVERY 3 WEEKS
     Route: 042
     Dates: start: 20180306, end: 20180508
  6. TRASTUZUMAB [Suspect]
     Active Substance: TRASTUZUMAB
     Dosage: 504 MG, EVERY 3 WEEKS
     Route: 042
     Dates: start: 20180529
  7. CODEINE PHOSPHATE [Concomitant]
     Active Substance: CODEINE PHOSPHATE
     Dosage: 30 MG, 4X/DAY
     Route: 048
     Dates: start: 20180809, end: 20180905
  8. CHOLECALCIFEROL [Concomitant]
     Active Substance: CHOLECALCIFEROL
     Dosage: UNK
     Route: 048
  9. DEXAMETHASONE [Concomitant]
     Active Substance: DEXAMETHASONE
     Dosage: 8 MG, BD FOR 3 DAYS ON DAY 21 OF CYCLE
     Route: 048
     Dates: start: 20180213, end: 20180529
  10. DOCUSATE [Concomitant]
     Active Substance: DOCUSATE
     Dosage: 100 MG, 2X/DAY
     Route: 048
     Dates: start: 20180323, end: 20180505
  11. DOXYCYCLINE [Concomitant]
     Active Substance: DOXYCYCLINE
     Dosage: 100 MG, 1X/DAY
     Route: 048
     Dates: start: 20180219
  12. LYMECYCLINE [Concomitant]
     Active Substance: LYMECYCLINE
     Dosage: 408 MG, 1X/DAY
     Route: 048
  13. METOCLOPRAMIDE [Concomitant]
     Active Substance: METOCLOPRAMIDE
     Dosage: 10 MG, AS NEEDED
     Route: 048
     Dates: start: 20180213, end: 20180529
  14. MORPHINE SULFATE [Concomitant]
     Active Substance: MORPHINE SULFATE
     Dosage: 30 MG, AS NEEDED
     Route: 048
     Dates: start: 20180809, end: 20180905
  15. ONDANSETRON [Concomitant]
     Active Substance: ONDANSETRON
     Dosage: 8 MG, SINGLE DOSE THEN EVERY 3 WEEKS
     Route: 048
     Dates: start: 20180213, end: 20180529
  16. TETANUS TOXOID ADSORBED (VACCINE) [Concomitant]
     Active Substance: CLOSTRIDIUM TETANI TOXOID ANTIGEN (FORMALDEHYDE INACTIVATED)
     Indication: Immunisation
     Dosage: BOOSTER

REACTIONS (1)
  - Lower respiratory tract infection [Recovered/Resolved]

NARRATIVE: CASE EVENT DATE: 20221224
